FAERS Safety Report 5345315-8 (Version None)
Quarter: 2007Q2

REPORT INFORMATION
  Report Type: 
  Country: None (occurrence: None)
  Receive Date: 20070601
  Receipt Date: 20070524
  Transmission Date: 20071010
  Serious: Yes (Hospitalization, Disabling, Other)
  Sender: FDA-Public Use
  Company Number: 2006SP001459

PATIENT
  Age: 56 Year
  Sex: Female
  Weight: 45.3597 kg

DRUGS (11)
  1. PEG-INTRON [Suspect]
     Indication: HEPATITIS C
     Dosage: ; SC
     Route: 058
     Dates: start: 20060618, end: 20070517
  2. RIBASPHERE [Suspect]
     Indication: HEPATITIS C
     Dosage: ; PO
     Route: 048
     Dates: start: 20060618, end: 20070517
  3. ADVAIR DISKUS 100/50 [Concomitant]
  4. ALBUTEROL SULATE [Concomitant]
  5. LIPITOR [Concomitant]
  6. LISINOPRIL HYDROCHLORTHIAZID [Concomitant]
  7. INFANTS NON-ASPIRIN ORAL SUSPENSION [Concomitant]
  8. SPIRIVA [Concomitant]
  9. LISINOPRIL [Concomitant]
  10. VERAPAMIL HYDROCHLORIDE [Concomitant]
  11. WELLBUTRIN [Concomitant]

REACTIONS (18)
  - ALOPECIA [None]
  - AMNESIA [None]
  - ANAEMIA [None]
  - ASTHMA [None]
  - BLOOD PRESSURE DECREASED [None]
  - CHRONIC OBSTRUCTIVE PULMONARY DISEASE [None]
  - CONDITION AGGRAVATED [None]
  - DELIRIUM [None]
  - HAIR COLOUR CHANGES [None]
  - INJECTION SITE ERYTHEMA [None]
  - INJECTION SITE PRURITUS [None]
  - KIDNEY INFECTION [None]
  - MALAISE [None]
  - NAUSEA [None]
  - PYREXIA [None]
  - TREMOR [None]
  - WEIGHT DECREASED [None]
  - WHITE BLOOD CELL COUNT DECREASED [None]
